FAERS Safety Report 7985859-3 (Version None)
Quarter: 2011Q4

REPORT INFORMATION
  Report Type: 
  Country: None (occurrence: None)
  Receive Date: 20111216
  Receipt Date: 20111208
  Transmission Date: 20120403
  Serious: Yes (Hospitalization)
  Sender: FDA-Public Use
  Company Number: FR-CEPHALON-2011006174

PATIENT
  Sex: Female

DRUGS (3)
  1. SECTRAL [Concomitant]
  2. MODAFANIL [Suspect]
     Indication: NARCOLEPSY
     Route: 048
     Dates: start: 20060601, end: 20060901
  3. PLAVIX [Concomitant]

REACTIONS (2)
  - CARDIAC NEOPLASM UNSPECIFIED [None]
  - HEADACHE [None]
